FAERS Safety Report 5218570-2 (Version None)
Quarter: 2007Q1

REPORT INFORMATION
  Report Type: 
  Country: None (occurrence: None)
  Receive Date: 20070122
  Receipt Date: 20070108
  Transmission Date: 20070707
  Serious: Yes (Hospitalization)
  Sender: FDA-Public Use
  Company Number: 2006SP008995

PATIENT
  Age: 45 Year
  Sex: Male
  Weight: 71 kg

DRUGS (8)
  1. VIRAFERONPEG (PEGINTERFERON ALFA-2B) (PEGINTERFERON ALFA-2B) [Suspect]
     Indication: HEPATITIS C
     Dosage: 40 MCG; QW; SC
     Route: 058
     Dates: start: 20060924
  2. REBETOL [Suspect]
     Indication: HEPATITIS C
     Dosage: 200 MG; QD; PO
     Route: 048
     Dates: start: 20060924
  3. COMBIVIR [Suspect]
     Indication: HIV INFECTION
     Dosage: 2 DF; QD; PO
     Route: 048
     Dates: start: 20060924
  4. PAROXETINE (CON.) [Concomitant]
  5. ERYTHROPOIETIN (CON.) [Concomitant]
  6. VIRACEPT (CON.) [Concomitant]
  7. APROVEL (CON.) [Concomitant]
  8. CORGARD (CON.) [Concomitant]

REACTIONS (9)
  - ANAEMIA MACROCYTIC [None]
  - CALCINOSIS [None]
  - CHOLESTASIS [None]
  - CYTOLYTIC HEPATITIS [None]
  - EPISTAXIS [None]
  - INTRACRANIAL ANEURYSM [None]
  - PORTAL HYPERTENSION [None]
  - SINUS DISORDER [None]
  - SINUSITIS [None]
